FAERS Safety Report 10611063 (Version 1)
Quarter: 2014Q4

REPORT INFORMATION
  Report Type: Spontaneous
  Country: US (occurrence: US)
  Receive Date: 20141126
  Receipt Date: 20141126
  Transmission Date: 20150529
  Serious: No
  Sender: FDA-Public Use
  Company Number: US-US-EMD SERONO, INC.-7336021

PATIENT
  Sex: Female
  Weight: 87 kg

DRUGS (1)
  1. REBIF [Suspect]
     Active Substance: INTERFERON BETA-1A
     Indication: RELAPSING-REMITTING MULTIPLE SCLEROSIS
     Dates: start: 2006, end: 201401

REACTIONS (2)
  - Pituitary tumour benign [Not Recovered/Not Resolved]
  - Therapeutic response changed [Unknown]
